FAERS Safety Report 5964752-1 (Version None)
Quarter: 2008Q4

REPORT INFORMATION
  Report Type: 
  Country: None (occurrence: None)
  Receive Date: 20081125
  Receipt Date: 20081027
  Transmission Date: 20090506
  Serious: No
  Sender: FDA-Public Use
  Company Number: US-AMGEN-KDL312753

PATIENT
  Sex: Female

DRUGS (10)
  1. ENBREL [Suspect]
     Indication: RHEUMATOID ARTHRITIS
     Route: 058
     Dates: start: 20080813
  2. AZATHIOPRINE [Concomitant]
     Dates: start: 19830101
  3. PRILOSEC [Concomitant]
  4. AMILORIDE HYDROCHLORIDE [Concomitant]
  5. CREON [Concomitant]
  6. LOMOTIL [Concomitant]
  7. DIFLUCAN [Concomitant]
  8. ASACOL [Concomitant]
  9. QUESTRAN [Concomitant]
  10. METOPROLOL TARTRATE [Concomitant]

REACTIONS (4)
  - DRY EYE [None]
  - JOINT SWELLING [None]
  - NERVOUSNESS [None]
  - OEDEMA PERIPHERAL [None]
